FAERS Safety Report 8208771 (Version 6)
Quarter: 2012Q4

REPORT INFORMATION
  Report Type: Report from Study
  Country: CA (occurrence: CA)
  Receive Date: 20111028
  Receipt Date: 20121203
  Transmission Date: 20130627
  Serious: Yes (Death, Hospitalization)
  Sender: FDA-Public Use
  Company Number: CA-CELGENEUS-028-CCAZA-11102798

PATIENT
  Age: 78 Year
  Sex: Male
  Weight: 104.2 kg

DRUGS (16)
  1. AZACITIDINE INJECTABLE [Suspect]
     Indication: ACUTE MYELOID LEUKEMIA
     Dosage: 75 milligram/sq. meter
     Route: 058
     Dates: start: 20110906, end: 20110912
  2. AZACITIDINE INJECTABLE [Suspect]
     Dosage: 75 milligram/sq. meter
     Route: 058
     Dates: start: 20111017, end: 20111023
  3. TINZAPARIN [Concomitant]
     Indication: DVT
     Dosage: 3500 units
     Route: 058
     Dates: end: 20111017
  4. ALLOPURINOL [Concomitant]
     Indication: DRUG USE FOR UNKNOWN INDICATION
     Dosage: 300 Milligram
     Route: 048
  5. HYDROXYUREA [Concomitant]
     Indication: DRUG USE FOR UNKNOWN INDICATION
     Dosage: 1500 Milligram
     Route: 048
  6. SEPTRA [Concomitant]
     Indication: DRUG USE FOR UNKNOWN INDICATION
     Dosage: 400/80/ 4 tablets
     Route: 048
     Dates: end: 201110
  7. PREDNISONE [Concomitant]
     Indication: DRUG USE FOR UNKNOWN INDICATION
     Dosage: 20 Milligram
     Route: 048
     Dates: end: 201110
  8. METOPROLOL [Concomitant]
     Indication: ATRIAL FIBRILLATION
     Dosage: 25
     Route: 048
  9. FLOMAX [Concomitant]
     Indication: DRUG USE FOR UNKNOWN INDICATION
     Dosage: .4 Milligram
     Route: 065
  10. TYLENOL [Concomitant]
     Indication: DRUG USE FOR UNKNOWN INDICATION
     Route: 065
  11. PLATELETS [Concomitant]
     Indication: DRUG USE FOR UNKNOWN INDICATION
     Route: 065
     Dates: start: 20111019, end: 20111019
  12. BLOOD [Concomitant]
     Indication: DRUG USE FOR UNKNOWN INDICATION
     Dosage: 1 IU (International Unit)
     Route: 065
     Dates: start: 20111020, end: 20111020
  13. BLOOD [Concomitant]
     Dosage: 2 units
     Route: 065
     Dates: start: 20111021, end: 20111021
  14. DIGOXIN [Concomitant]
     Indication: ATRIAL FIBRILLATION
     Route: 065
  15. LEVOFLOXACIN [Concomitant]
     Indication: PNEUMONIA
     Route: 065
  16. PIP/TAZO [Concomitant]
     Indication: PNEUMONIA
     Route: 065

REACTIONS (6)
  - Respiratory failure [Fatal]
  - Renal failure [Fatal]
  - Pneumonia [Fatal]
  - Acute myeloid leukaemia [Fatal]
  - Pain [Not Recovered/Not Resolved]
  - Haematoma [Not Recovered/Not Resolved]
